FAERS Safety Report 9278887 (Version 2)
Quarter: 2013Q2

REPORT INFORMATION
  Report Type: Spontaneous
  Country: JP (occurrence: JP)
  Receive Date: 20130508
  Receipt Date: 20130521
  Transmission Date: 20140414
  Serious: Yes (Other)
  Sender: FDA-Public Use
  Company Number: JP-SP-2013-05849

PATIENT
  Age: 81 Year
  Sex: Male

DRUGS (1)
  1. IMMUCYST [Suspect]
     Indication: BLADDER CANCER
     Dosage: NOT REPORTED
     Route: 043
     Dates: start: 20130424

REACTIONS (2)
  - Pneumonia [Recovered/Resolved]
  - Malaise [Recovered/Resolved with Sequelae]
